FAERS Safety Report 21231286 (Version 3)
Quarter: 2025Q3

REPORT INFORMATION
  Report Type: Spontaneous
  Country: US (occurrence: US)
  Receive Date: 20220819
  Receipt Date: 20250703
  Transmission Date: 20251020
  Serious: No
  Sender: SANOFI AVENTIS
  Company Number: US-SA-SAC20220816000117

PATIENT
  Age: 62 Year
  Sex: Female

DRUGS (1)
  1. DUPIXENT [Suspect]
     Active Substance: DUPILUMAB
     Indication: Dermatitis atopic
     Dosage: 300 MG, QOW
     Route: 058
     Dates: start: 202205

REACTIONS (6)
  - Dry skin [Unknown]
  - Skin fissures [Unknown]
  - Pruritus [Not Recovered/Not Resolved]
  - Pruritus [Unknown]
  - Skin exfoliation [Unknown]
  - Dry eye [Unknown]

NARRATIVE: CASE EVENT DATE: 20240101
